FAERS Safety Report 4621380-8 (Version None)
Quarter: 2005Q1

REPORT INFORMATION
  Report Type: 
  Country: None (occurrence: None)
  Receive Date: 20050325
  Receipt Date: 20050316
  Transmission Date: 20050727
  Serious: Yes (Death, Life-Threatening, Disabling, Other)
  Sender: FDA-Public Use
  Company Number: S05-UKI-01168-01

PATIENT
  Age: 37 Year
  Sex: Male

DRUGS (1)
  1. CIPRALEX (ESCITALOPRAM) [Suspect]
     Indication: MAJOR DEPRESSION
     Dates: start: 20041109, end: 20041207

REACTIONS (1)
  - COMPLETED SUICIDE [None]
